FAERS Safety Report 6670331-3 (Version None)
Quarter: 2010Q2

REPORT INFORMATION
  Report Type: 
  Country: None (occurrence: None)
  Receive Date: 20100405
  Receipt Date: 20100330
  Transmission Date: 20101027
  Serious: Yes (Death)
  Sender: FDA-Public Use
  Company Number: 2010SP019070

PATIENT
  Age: 54 Year
  Sex: Female

DRUGS (1)
  1. TEMODAL [Suspect]
     Indication: NEOPLASM MALIGNANT
     Dates: start: 20090101

REACTIONS (1)
  - DEATH [None]
